FAERS Safety Report 14308328 (Version 1)
Quarter: 2017Q4

REPORT INFORMATION
  Report Type: Spontaneous
  Country: NO (occurrence: NO)
  Receive Date: 20171220
  Receipt Date: 20171220
  Transmission Date: 20180321
  Serious: Yes (Life-Threatening, Hospitalization)
  Sender: FDA-Public Use
  Company Number: NO-CIPLA LTD.-2017NO24787

PATIENT

DRUGS (8)
  1. PARALGIN FORTE [Concomitant]
     Active Substance: ACETAMINOPHEN\CODEINE PHOSPHATE
     Dosage: 0.5 DF, AS NEEDED; AS NECESSARY
     Route: 065
  2. EMCONCOR [Concomitant]
     Active Substance: BISOPROLOL FUMARATE
     Indication: BLOOD PRESSURE MEASUREMENT
     Dosage: UNK
     Route: 065
  3. OXYCONTIN [Concomitant]
     Active Substance: OXYCODONE HYDROCHLORIDE
     Indication: PAIN
     Dosage: UNK
     Route: 065
  4. SOBRIL [Concomitant]
     Active Substance: OXAZEPAM
     Dosage: UNK
     Route: 065
  5. SERTRALINE [Suspect]
     Active Substance: SERTRALINE HYDROCHLORIDE
     Dosage: UNK
     Route: 065
  6. CORTISON [Concomitant]
     Active Substance: CORTISONE ACETATE
     Indication: BLOOD PRESSURE MEASUREMENT
     Dosage: UNK
     Route: 065
  7. NOBLIGAN [Suspect]
     Active Substance: TRAMADOL HYDROCHLORIDE
     Indication: LIMB CRUSHING INJURY
     Dosage: UNK
     Route: 065
  8. MORPHINE [Concomitant]
     Active Substance: MORPHINE
     Dosage: UNK
     Route: 065

REACTIONS (28)
  - Depression [Unknown]
  - Fluid retention [Not Recovered/Not Resolved]
  - Balance disorder [Unknown]
  - Nervousness [Unknown]
  - Back pain [Unknown]
  - Limb crushing injury [Unknown]
  - Gastric disorder [Not Recovered/Not Resolved]
  - Hot flush [Unknown]
  - Wrist fracture [Unknown]
  - Cold sweat [Not Recovered/Not Resolved]
  - Palpitations [Not Recovered/Not Resolved]
  - Dyskinesia [Unknown]
  - Tinnitus [Unknown]
  - Dizziness [Unknown]
  - Pain [Unknown]
  - Hypertension [Unknown]
  - Flatulence [Unknown]
  - Lacrimation increased [Recovered/Resolved]
  - Weight increased [Unknown]
  - Drug dependence [Unknown]
  - Paraesthesia [Not Recovered/Not Resolved]
  - Tremor [Unknown]
  - Restlessness [Unknown]
  - Arthralgia [Unknown]
  - Musculoskeletal stiffness [Unknown]
  - Dysstasia [Unknown]
  - Dyspnoea [Unknown]
  - Myalgia [Unknown]
